FAERS Safety Report 4499716-0 (Version None)
Quarter: 2004Q4

REPORT INFORMATION
  Report Type: 
  Country: None (occurrence: None)
  Receive Date: 20041108
  Receipt Date: 20040601
  Transmission Date: 20050328
  Serious: Yes (Other)
  Sender: FDA-Public Use
  Company Number: 2004038770

PATIENT
  Sex: Female

DRUGS (2)
  1. NICORETTE [Suspect]
     Indication: SMOKING CESSATION THERAPY
     Dosage: 6-9 CARTRIDGES PER
  2. SUMATRIPTAN SUCCINATE [Concomitant]

REACTIONS (7)
  - ABORTION SPONTANEOUS [None]
  - ANGER [None]
  - DRUG EXPOSURE DURING PREGNANCY [None]
  - DYSPNOEA [None]
  - HAEMOGLOBIN DECREASED [None]
  - IRRITABILITY [None]
  - TREATMENT NONCOMPLIANCE [None]
